FAERS Safety Report 13751680 (Version 1)
Quarter: 2017Q3

REPORT INFORMATION
  Report Type: Spontaneous
  Country: US (occurrence: US)
  Receive Date: 20170713
  Receipt Date: 20170713
  Transmission Date: 20171127
  Serious: Yes (Hospitalization)
  Sender: FDA-Public Use
  Company Number: US-ASTELLAS-2017US026777

PATIENT
  Age: 29 Year
  Sex: Male

DRUGS (8)
  1. PROGRAF [Suspect]
     Active Substance: TACROLIMUS\TACROLIMUS ANHYDROUS
     Dosage: 0.5 MG, ONCE DAILY EVERY EVENING
     Route: 048
     Dates: start: 20170705
  2. PROGRAF [Suspect]
     Active Substance: TACROLIMUS\TACROLIMUS ANHYDROUS
     Route: 048
     Dates: start: 201706
  3. PROGRAF [Suspect]
     Active Substance: TACROLIMUS\TACROLIMUS ANHYDROUS
     Dosage: 8 MILLIGRAMS / EVERY MORNING AND 8 MILLIGRAMS / EVERY EVENING, UNKNOWN FREQ.
     Route: 048
     Dates: start: 20170705
  4. PROGRAF [Suspect]
     Active Substance: TACROLIMUS\TACROLIMUS ANHYDROUS
     Dosage: 7 MILLIGRAMS / EVERY MORNING AND 8 MILLIGRAMS /AT NIGHT, UNKNOWN FREQ.
     Route: 048
     Dates: start: 20170630
  5. TACROLIMUS. [Suspect]
     Active Substance: TACROLIMUS
     Indication: HEART TRANSPLANT
     Dosage: UNK UNK, UNKNOWN FREQ.
     Route: 065
     Dates: end: 20170627
  6. PROGRAF [Suspect]
     Active Substance: TACROLIMUS\TACROLIMUS ANHYDROUS
     Indication: HEART TRANSPLANT
     Route: 048
     Dates: start: 20170616
  7. PROGRAF [Suspect]
     Active Substance: TACROLIMUS\TACROLIMUS ANHYDROUS
     Route: 048
     Dates: start: 20170628
  8. PROGRAF [Suspect]
     Active Substance: TACROLIMUS\TACROLIMUS ANHYDROUS
     Indication: HEART TRANSPLANT
     Dosage: 0.5 MG, ONCE DAILY EVERY MORNING
     Route: 048

REACTIONS (4)
  - Heart transplant rejection [Unknown]
  - Immunosuppressant drug level increased [Recovering/Resolving]
  - Treatment noncompliance [Unknown]
  - Drug level below therapeutic [Recovering/Resolving]

NARRATIVE: CASE EVENT DATE: 20170621
